FAERS Safety Report 23617815 (Version 2)
Quarter: 2024Q2

REPORT INFORMATION
  Report Type: Spontaneous
  Country: US (occurrence: US)
  Receive Date: 20240311
  Receipt Date: 20240425
  Transmission Date: 20240716
  Serious: No
  Sender: FDA-Public Use
  Company Number: US-SA-SAC20240308000346

PATIENT
  Sex: Female
  Weight: 106.5 kg

DRUGS (2)
  1. DUPIXENT [Suspect]
     Active Substance: DUPILUMAB
     Indication: Illness
     Dosage: 300 MG, QOW
     Route: 058
  2. DUPIXENT [Suspect]
     Active Substance: DUPILUMAB
     Indication: Dermatitis atopic

REACTIONS (4)
  - Discomfort [Unknown]
  - Perioral dermatitis [Unknown]
  - Erythema [Unknown]
  - Dermatitis atopic [Unknown]
